FAERS Safety Report 21519810 (Version 2)
Quarter: 2022Q4

REPORT INFORMATION
  Report Type: Report from Study
  Country: US (occurrence: US)
  Receive Date: 20221028
  Receipt Date: 20221116
  Transmission Date: 20230113
  Serious: Yes (Hospitalization)
  Sender: FDA-Public Use
  Company Number: US-BRISTOL-MYERS SQUIBB COMPANY-2022-104348

PATIENT
  Age: 63 Year
  Sex: Female

DRUGS (2)
  1. ZEPOSIA [Suspect]
     Active Substance: OZANIMOD HYDROCHLORIDE
     Indication: Multiple sclerosis
     Dosage: 0.23-0.92
     Route: 048
     Dates: start: 20220820
  2. ZEPOSIA [Suspect]
     Active Substance: OZANIMOD HYDROCHLORIDE
     Route: 048
     Dates: start: 20220827

REACTIONS (4)
  - Influenza [Unknown]
  - Concussion [Recovering/Resolving]
  - Amnesia [Recovering/Resolving]
  - Fall [Recovering/Resolving]

NARRATIVE: CASE EVENT DATE: 20220828
